FAERS Safety Report 6051333-7 (Version None)
Quarter: 2009Q1

REPORT INFORMATION
  Report Type: 
  Country: None (occurrence: None)
  Receive Date: 20090121
  Receipt Date: 20090105
  Transmission Date: 20090719
  Serious: Yes (Disabling, Other)
  Sender: FDA-Public Use
  Company Number: 2009000001

PATIENT
  Age: 77 Year
  Sex: Male

DRUGS (1)
  1. TARCEVA [Suspect]
     Indication: LUNG ADENOCARCINOMA
     Dosage: 150 MG, QD, ORAL
     Route: 048
     Dates: start: 20081205

REACTIONS (4)
  - METASTASES TO BONE [None]
  - PARAPLEGIA [None]
  - RASH [None]
  - SPEECH DISORDER [None]
